FAERS Safety Report 16776796 (Version 2)
Quarter: 2019Q3

REPORT INFORMATION
  Report Type: Spontaneous
  Country: JP (occurrence: JP)
  Receive Date: 20190905
  Receipt Date: 20190905
  Transmission Date: 20191005
  Serious: Yes (Other)
  Sender: FDA-Public Use
  Company Number: JP-GUERBET-JP-20190128

PATIENT
  Age: 74 Year
  Sex: Female
  Weight: 37.9 kg

DRUGS (5)
  1. OPTIRAY 320 [Suspect]
     Active Substance: IOVERSOL
     Indication: SCAN WITH CONTRAST
     Route: 065
     Dates: start: 20190808, end: 20190808
  2. LAFUTIDINE [Concomitant]
     Active Substance: LAFUTIDINE
     Indication: PRODUCT USED FOR UNKNOWN INDICATION
     Route: 065
  3. EDIROL [Concomitant]
     Active Substance: ELDECALCITOL
     Indication: PRODUCT USED FOR UNKNOWN INDICATION
     Route: 065
  4. VIVIANT [Concomitant]
     Active Substance: BAZEDOXIFENE
     Indication: PRODUCT USED FOR UNKNOWN INDICATION
     Route: 065
  5. AMITIZA [Concomitant]
     Active Substance: LUBIPROSTONE
     Indication: PRODUCT USED FOR UNKNOWN INDICATION
     Route: 065

REACTIONS (5)
  - Cough [Recovered/Resolved]
  - Oxygen saturation decreased [Recovered/Resolved]
  - Blood pressure decreased [Recovered/Resolved]
  - Sputum retention [Recovered/Resolved]
  - Flushing [Recovered/Resolved]

NARRATIVE: CASE EVENT DATE: 20190808
